FAERS Safety Report 6814916-X (Version None)
Quarter: 2010Q3

REPORT INFORMATION
  Report Type: 
  Country: None (occurrence: None)
  Receive Date: 20100702
  Receipt Date: 20100625
  Transmission Date: 20110219
  Serious: Yes (Death, Other)
  Sender: FDA-Public Use
  Company Number: US-PURDUE-USA-2010-0044313

PATIENT
  Sex: Female
  Weight: 57.143 kg

DRUGS (8)
  1. MORPHINE SULFATE [Suspect]
     Indication: DRUG ABUSE
  2. COCAINE [Suspect]
     Indication: DRUG ABUSE
  3. HYDROCODONE BITARTRATE [Suspect]
     Indication: DRUG ABUSE
  4. ALPRAZOLAM [Suspect]
     Indication: PRODUCT USED FOR UNKNOWN INDICATION
  5. SERTRALINE [Suspect]
     Indication: PRODUCT USED FOR UNKNOWN INDICATION
  6. CARISOPRODOL [Suspect]
     Indication: PRODUCT USED FOR UNKNOWN INDICATION
  7. MEPROBAMATE [Suspect]
     Indication: PRODUCT USED FOR UNKNOWN INDICATION
  8. HEROIN [Suspect]
     Indication: DRUG ABUSE

REACTIONS (2)
  - DROWNING [None]
  - SUBSTANCE ABUSE [None]
